FAERS Safety Report 8653442 (Version 2)
Quarter: 2012Q4

REPORT INFORMATION
  Report Type: 
  Country: JP (occurrence: JP)
  Receive Date: 20120706
  Receipt Date: 20121019
  Transmission Date: 20130627
  Serious: No
  Sender: FDA-Public Use
  Company Number: PHHY2012JP056645

PATIENT
  Age: 78 Year
  Sex: Female

DRUGS (5)
  1. ISONIAZID [Suspect]
     Indication: MENINGITIS TUBERCULOUS
     Dosage: 200 mg, UNK
  2. RIFAMPICIN [Suspect]
     Indication: MENINGITIS TUBERCULOUS
     Dosage: 450 mg, UNK
  3. PYRAZINAMIDE [Suspect]
     Indication: MENINGITIS TUBERCULOUS
     Dosage: 1000 mg, UNK
  4. ETHAMBUTOL [Suspect]
     Indication: MENINGITIS TUBERCULOUS
     Dosage: 500 mg, UNK
  5. PREDNISOLONE [Suspect]
     Indication: MENINGITIS TUBERCULOUS
     Dosage: 40 mg, UNK

REACTIONS (1)
  - Drug ineffective [Unknown]
